FAERS Safety Report 14358888 (Version 2)
Quarter: 2018Q1

REPORT INFORMATION
  Report Type: Spontaneous
  Country: US (occurrence: US)
  Receive Date: 20180105
  Receipt Date: 20180219
  Transmission Date: 20180509
  Serious: Yes (Death, Hospitalization, Other)
  Sender: FDA-Public Use
  Company Number: US-BRAEBURN PHARMACEUTICALS, INC.-2017BBN00082

PATIENT
  Sex: Male
  Weight: 134.24 kg

DRUGS (9)
  1. METFORMIN [Concomitant]
     Active Substance: METFORMIN HYDROCHLORIDE
  2. DOXAZOSIN [Concomitant]
     Active Substance: DOXAZOSIN\DOXAZOSIN MESYLATE
  3. ALBUTEROL INHALER [Concomitant]
     Active Substance: ALBUTEROL
  4. EFFEXOR [Concomitant]
     Active Substance: VENLAFAXINE HYDROCHLORIDE
  5. LYRICA [Concomitant]
     Active Substance: PREGABALIN
  6. PROBUPHINE [Suspect]
     Active Substance: BUPRENORPHINE HYDROCHLORIDE
     Indication: DRUG DEPENDENCE
     Dosage: 4 DOSAGE UNITS, LEFT ARM
     Route: 059
     Dates: start: 20170921
  7. DOXEPIN [Concomitant]
     Active Substance: DOXEPIN
  8. ABILIFY [Concomitant]
     Active Substance: ARIPIPRAZOLE
  9. DEPO TESTOSTERONE [Concomitant]
     Active Substance: TESTOSTERONE
     Dosage: 200 MG, 2X/MONTH

REACTIONS (2)
  - Pneumonia [Unknown]
  - Death [Fatal]
